FAERS Safety Report 5938054-3 (Version None)
Quarter: 2008Q4

REPORT INFORMATION
  Report Type: 
  Country: None (occurrence: None)
  Receive Date: 20081031
  Receipt Date: 20081021
  Transmission Date: 20090506
  Serious: Yes (Hospitalization)
  Sender: FDA-Public Use
  Company Number: PHBS2008JP05660

PATIENT
  Age: 79 Year
  Sex: Male

DRUGS (3)
  1. METOPROLOL TARTRATE [Suspect]
     Indication: ATRIAL FLUTTER
     Dosage: 60 MG, UNK
     Route: 048
     Dates: start: 20061010, end: 20061029
  2. CIPRALAN [Interacting]
     Dosage: 300 MG, UNK
     Route: 048
     Dates: start: 20061010, end: 20061029
  3. VERAPAMIL HYDROCHLORIDE [Concomitant]
     Dosage: 120 MG, UNK
     Route: 048
     Dates: start: 20061010, end: 20061029

REACTIONS (17)
  - ALTERED STATE OF CONSCIOUSNESS [None]
  - BRADYCARDIA [None]
  - DEPRESSED LEVEL OF CONSCIOUSNESS [None]
  - DRUG INTERACTION [None]
  - DRUG LEVEL INCREASED [None]
  - DRUG TOXICITY [None]
  - ELECTROCARDIOGRAM QRS COMPLEX PROLONGED [None]
  - HAEMODIALYSIS [None]
  - HAEMOPERFUSION [None]
  - HEART RATE ABNORMAL [None]
  - HEPATIC FUNCTION ABNORMAL [None]
  - HYPOTENSION [None]
  - MALAISE [None]
  - MECHANICAL VENTILATION [None]
  - PLASMAPHERESIS [None]
  - RENAL FAILURE ACUTE [None]
  - RENAL IMPAIRMENT [None]
